FAERS Safety Report 25178245 (Version 2)
Quarter: 2025Q3

REPORT INFORMATION
  Report Type: Spontaneous
  Country: EU (occurrence: EU)
  Receive Date: 20250409
  Receipt Date: 20250802
  Transmission Date: 20251021
  Serious: Yes (Other)
  Sender: ALEXION PHARMACEUTICALS
  Company Number: None

PATIENT
  Age: 93 Year
  Sex: Female
  Weight: 60 kg

DRUGS (5)
  1. DAPAGLIFLOZIN [Suspect]
     Active Substance: DAPAGLIFLOZIN
     Indication: Cardiac failure
     Dosage: 5 MILLIGRAM, Q12H
     Dates: start: 20250227, end: 20250302
  2. COLCHICINE [Suspect]
     Active Substance: COLCHICINE
     Indication: Arthralgia
     Dates: start: 20250306, end: 20250310
  3. COLCHICINE [Suspect]
     Active Substance: COLCHICINE
     Indication: Arthritis
  4. ELIQUIS [Suspect]
     Active Substance: APIXABAN
     Route: 065
  5. VENOFER [Suspect]
     Active Substance: IRON SUCROSE
     Indication: Blood iron decreased
     Dates: start: 20250307, end: 20250307

REACTIONS (1)
  - Hepatic cytolysis [Not Recovered/Not Resolved]

NARRATIVE: CASE EVENT DATE: 20250311
